FAERS Safety Report 7261038-2 (Version None)
Quarter: 2011Q1

REPORT INFORMATION
  Report Type: 
  Country: None (occurrence: None)
  Receive Date: 20110130
  Receipt Date: 20101123
  Transmission Date: 20110831
  Serious: No
  Sender: FDA-Public Use
  Company Number: US-ABBOTT-10P-163-0687583-00

PATIENT
  Sex: Male

DRUGS (2)
  1. HUMIRA [Suspect]
     Indication: CROHN'S DISEASE
     Dates: start: 20070701, end: 20090101
  2. HUMIRA [Suspect]
     Dates: start: 20090101

REACTIONS (2)
  - HYPERKALAEMIA [None]
  - PLEURISY [None]
